FAERS Safety Report 23633081 (Version 1)
Quarter: 2024Q1

REPORT INFORMATION
  Report Type: Spontaneous
  Country: US (occurrence: None)
  Receive Date: 20240314
  Receipt Date: 20240314
  Transmission Date: 20240410
  Serious: Yes (Other)
  Sender: FDA-Public Use
  Company Number: None

PATIENT
  Age: 38 Year
  Sex: Female
  Weight: 74.25 kg

DRUGS (5)
  1. EMGALITY [Suspect]
     Active Substance: GALCANEZUMAB-GNLM
     Indication: Migraine
     Dosage: OTHER QUANTITY : 1 INJECTION(S);?OTHER FREQUENCY : 1X MONTH;?OTHER ROUTE : INJECTED INTO STOMACH;?
     Route: 050
     Dates: start: 20231201
  2. LEVOTHYROXINE [Concomitant]
     Active Substance: LEVOTHYROXINE\LEVOTHYROXINE SODIUM
  3. SUMATRIPTAN [Concomitant]
     Active Substance: SUMATRIPTAN
  4. VITAMINS [Concomitant]
     Active Substance: VITAMINS
  5. MELATONIN [Concomitant]
     Active Substance: MELATONIN

REACTIONS (16)
  - Arthralgia [None]
  - Pain in extremity [None]
  - Arthralgia [None]
  - Erythema [None]
  - Gait disturbance [None]
  - Arthralgia [None]
  - Joint range of motion decreased [None]
  - Pain [None]
  - Arthralgia [None]
  - Mobility decreased [None]
  - Sleep disorder [None]
  - Pain in extremity [None]
  - Musculoskeletal stiffness [None]
  - Peripheral swelling [None]
  - Migraine [None]
  - Paradoxical drug reaction [None]

NARRATIVE: CASE EVENT DATE: 20240218
